FAERS Safety Report 21265375 (Version 1)
Quarter: 2022Q3

REPORT INFORMATION
  Report Type: Spontaneous
  Country: US (occurrence: None)
  Receive Date: 20220826
  Receipt Date: 20220826
  Transmission Date: 20221027
  Serious: No
  Sender: FDA-Public Use
  Company Number: None

PATIENT
  Sex: Female

DRUGS (11)
  1. AMBRISENTAN [Suspect]
     Active Substance: AMBRISENTAN
     Indication: Pulmonary hypertension
     Dosage: FREQUENCY : DAILY;?
     Route: 048
  2. OLANZAPINE [Concomitant]
     Active Substance: OLANZAPINE
  3. ABILIFY [Concomitant]
     Active Substance: ARIPIPRAZOLE
  4. WELLBUTRIN XL [Concomitant]
     Active Substance: BUPROPION HYDROCHLORIDE
  5. METOPROLOL SUCCINATE [Concomitant]
     Active Substance: METOPROLOL SUCCINATE
  6. BUSPIRONE HCL [Concomitant]
     Active Substance: BUSPIRONE HYDROCHLORIDE
  7. FUROSEMIDE [Concomitant]
     Active Substance: FUROSEMIDE
  8. SPIRONOLACTONE [Concomitant]
     Active Substance: SPIRONOLACTONE
  9. ZONISAMIDE [Concomitant]
     Active Substance: ZONISAMIDE
  10. LISINOPRIL [Concomitant]
     Active Substance: LISINOPRIL
  11. ASPIRIN 81 LOW DOSE [Concomitant]

REACTIONS (1)
  - Nausea [None]
